FAERS Safety Report 8220979-X (Version None)
Quarter: 2012Q1

REPORT INFORMATION
  Report Type: 
  Country: None (occurrence: None)
  Receive Date: 20120320
  Receipt Date: 20120308
  Transmission Date: 20120608
  Serious: Yes (Hospitalization)
  Sender: FDA-Public Use
  Company Number: FR-SANOFI-AVENTIS-2012SA015594

PATIENT
  Age: 0 Day
  Sex: Female
  Weight: 2.2 kg

DRUGS (3)
  1. AMITRIPTYLINE HCL [Suspect]
     Dosage: FREQUENCY: EVENING
     Route: 064
     Dates: start: 20090821, end: 20100415
  2. ZOLPIDEM [Suspect]
     Indication: SLEEP DISORDER
     Route: 064
     Dates: start: 20090821, end: 20100415
  3. CORTICOSTEROIDS [Concomitant]

REACTIONS (4)
  - PNEUMOTHORAX [None]
  - PREMATURE BABY [None]
  - NEONATAL RESPIRATORY DISTRESS SYNDROME [None]
  - MATERNAL EXPOSURE DURING PREGNANCY [None]
